FAERS Safety Report 6512418-1 (Version None)
Quarter: 2009Q4

REPORT INFORMATION
  Report Type: 
  Country: None (occurrence: None)
  Receive Date: 20091217
  Receipt Date: 20091208
  Transmission Date: 20100525
  Serious: Yes (Death)
  Sender: FDA-Public Use
  Company Number: 2009AL007656

PATIENT
  Age: 29 Year
  Sex: Female
  Weight: 48.6 kg

DRUGS (2)
  1. BUPROPION HCL [Suspect]
     Dosage: X1
  2. CITALOPRAM HYDROBROMIDE [Suspect]

REACTIONS (5)
  - CARDIO-RESPIRATORY ARREST [None]
  - DRUG TOXICITY [None]
  - LACERATION [None]
  - PULMONARY OEDEMA [None]
  - VOMITING [None]
